FAERS Safety Report 9482057 (Version 1)
Quarter: 2013Q3

REPORT INFORMATION
  Report Type: Spontaneous
  Country: GB (occurrence: GB)
  Receive Date: 20130828
  Receipt Date: 20130828
  Transmission Date: 20140515
  Serious: Yes (Disabling)
  Sender: FDA-Public Use
  Company Number: GB-JNJFOC-20130814076

PATIENT
  Age: 63 Year
  Sex: Male
  Weight: 76 kg

DRUGS (14)
  1. XARELTO [Suspect]
     Indication: PRODUCT USED FOR UNKNOWN INDICATION
     Route: 048
     Dates: start: 20130214
  2. BISOPROLOL [Concomitant]
     Route: 065
     Dates: start: 20130305, end: 20130523
  3. BUSCOPAN [Concomitant]
     Route: 065
     Dates: start: 20130516, end: 20130611
  4. CO CODAMOL [Concomitant]
     Route: 065
     Dates: start: 20130305, end: 20130317
  5. CO CODAMOL [Concomitant]
     Route: 065
     Dates: start: 20130412, end: 20130424
  6. CO-DYDRAMOL [Concomitant]
     Route: 065
     Dates: start: 20130425, end: 20130609
  7. CO-DYDRAMOL [Concomitant]
     Route: 065
     Dates: start: 20130315, end: 20130327
  8. WARFARIN SODIUM [Concomitant]
     Route: 065
     Dates: start: 20130521
  9. ATORVASTATIN [Concomitant]
     Route: 065
     Dates: start: 20130214, end: 20130503
  10. MEBEVERINE HYDROCHLORIDE [Concomitant]
     Route: 065
     Dates: start: 20130412, end: 20130413
  11. RAMIPRIL [Concomitant]
     Route: 065
     Dates: start: 20130305, end: 20130606
  12. ALVERINE CITRATE [Concomitant]
     Route: 065
     Dates: start: 20130509
  13. TRIMETHOPRIM [Concomitant]
     Route: 065
     Dates: start: 20130405, end: 20130410
  14. LANSOPRAZOLE [Concomitant]
     Route: 065
     Dates: start: 20130405, end: 20130503

REACTIONS (2)
  - Abdominal pain [Unknown]
  - Nausea [Recovering/Resolving]
